FAERS Safety Report 5193936-8 (Version None)
Quarter: 2006Q4

REPORT INFORMATION
  Report Type: 
  Country: None (occurrence: None)
  Receive Date: 20061228
  Receipt Date: 20061024
  Transmission Date: 20070319
  Serious: Yes (Other)
  Sender: FDA-Public Use
  Company Number: US-ROCHE-476032

PATIENT
  Age: 57 Year
  Sex: Male
  Weight: 112 kg

DRUGS (11)
  1. PEG-INTERFERON ALFA 2A (RO 25-8310) [Suspect]
     Indication: HEPATITIS C VIRUS
     Route: 058
     Dates: start: 20050308, end: 20060528
  2. RIBAVIRIN [Suspect]
     Indication: HEPATITIS C VIRUS
     Route: 048
     Dates: start: 20050308, end: 20060528
  3. METHADONE HCL [Concomitant]
  4. VASOTEC [Concomitant]
  5. MULTI-VITAMIN [Concomitant]
  6. ZANTAC [Concomitant]
  7. HYDROCHLOROTHIAZIDE [Concomitant]
  8. LOPRESSOR [Concomitant]
  9. MOTRIN [Concomitant]
  10. ASPIRIN [Concomitant]
  11. BACTRIM [Concomitant]

REACTIONS (2)
  - OSTEITIS DEFORMANS [None]
  - PROSTATE CANCER [None]
